FAERS Safety Report 13812585 (Version 2)
Quarter: 2017Q3

REPORT INFORMATION
  Report Type: Report from Study
  Country: None (occurrence: TR)
  Receive Date: 20170728
  Receipt Date: 20170814
  Transmission Date: 20171127
  Serious: Yes (Other)
  Sender: FDA-Public Use
  Company Number: TR-ABBVIE-17P-161-2052615-00

PATIENT
  Age: 79 Year
  Sex: Female
  Weight: 86 kg

DRUGS (5)
  1. LACOMBI [Concomitant]
     Indication: PROPHYLAXIS
     Route: 048
  2. PRAMIPEXOL [Concomitant]
     Active Substance: PRAMIPEXOLE
     Indication: PARKINSON^S DISEASE
     Route: 048
  3. DUODOPA [Suspect]
     Active Substance: CARBIDOPA\LEVODOPA
     Indication: PARKINSON^S DISEASE
     Dosage: MORNING DOSE (ML):7.2??CONTINOUS DOSE (ML):3.4??EXTRA DOSE (ML):1.0
     Route: 050
     Dates: start: 20161228
  4. DULOXETINA [Concomitant]
     Active Substance: DULOXETINE
     Indication: PARKINSON^S DISEASE
     Route: 048
  5. LEVODOPA/CARBIDOPA/ENTACAPONE ABZ [Concomitant]
     Indication: PARKINSON^S DISEASE
     Route: 048

REACTIONS (3)
  - Medical device pain [Recovered/Resolved]
  - Device dislocation [Recovered/Resolved]
  - Abdominal pain [Recovered/Resolved]

NARRATIVE: CASE EVENT DATE: 201707
